FAERS Safety Report 12622417 (Version 1)
Quarter: 2016Q3

REPORT INFORMATION
  Report Type: Spontaneous
  Country: GB (occurrence: GB)
  Receive Date: 20160804
  Receipt Date: 20160804
  Transmission Date: 20161109
  Serious: Yes (Other)
  Sender: FDA-Public Use
  Company Number: GB-TEVA-680587ACC

PATIENT
  Age: 17 Year
  Sex: Male
  Weight: 65 kg

DRUGS (3)
  1. LYMECYCLINE [Concomitant]
     Active Substance: LYMECYCLINE
  2. ADAPALENE. [Concomitant]
     Active Substance: ADAPALENE
  3. TRIMETHOPRIM. [Suspect]
     Active Substance: TRIMETHOPRIM
     Indication: ACNE
     Route: 048
     Dates: start: 20160615, end: 20160713

REACTIONS (9)
  - Neutropenia [Recovered/Resolved]
  - Rash erythematous [Unknown]
  - Paraesthesia oral [Unknown]
  - Nausea [Unknown]
  - Lip swelling [Unknown]
  - Hypersensitivity [Recovering/Resolving]
  - Musculoskeletal stiffness [Unknown]
  - Lymph node pain [Unknown]
  - Dyspnoea [Unknown]

NARRATIVE: CASE EVENT DATE: 20160713
